FAERS Safety Report 25478763 (Version 1)
Quarter: 2025Q2

REPORT INFORMATION
  Report Type: Spontaneous
  Country: AU (occurrence: AU)
  Receive Date: 20250625
  Receipt Date: 20250625
  Transmission Date: 20250717
  Serious: Yes (Other)
  Sender: GILEAD
  Company Number: AU-GILEAD-2025-0717141

PATIENT

DRUGS (1)
  1. YESCARTA [Suspect]
     Active Substance: AXICABTAGENE CILOLEUCEL
     Indication: Diffuse large B-cell lymphoma
     Route: 065
     Dates: start: 2024

REACTIONS (2)
  - Diffuse large B-cell lymphoma recurrent [Unknown]
  - Drug ineffective [Unknown]
